FAERS Safety Report 5995249-0 (Version None)
Quarter: 2008Q4

REPORT INFORMATION
  Report Type: 
  Country: None (occurrence: None)
  Receive Date: 20081212
  Receipt Date: 20080922
  Transmission Date: 20090506
  Serious: No
  Sender: FDA-Public Use
  Company Number: US-ABBOTT-08P-163-0477630-00

PATIENT
  Sex: Female
  Weight: 65.83 kg

DRUGS (11)
  1. HUMIRA [Suspect]
     Indication: SPINAL OSTEOARTHRITIS
     Route: 058
     Dates: start: 20040201, end: 20040301
  2. HUMIRA [Suspect]
     Indication: ANKYLOSING SPONDYLITIS
     Route: 058
     Dates: start: 20040301
  3. HUMIRA [Suspect]
     Route: 058
     Dates: end: 20080916
  4. VENLAFAXINE HCL [Concomitant]
     Indication: DEPRESSION
     Route: 048
     Dates: start: 19990501
  5. FLUOXETINE [Concomitant]
     Indication: DEPRESSION
     Route: 048
     Dates: start: 20080101
  6. PROPRANOLOL HYDROCHLORIDE [Concomitant]
     Indication: MIGRAINE
     Route: 048
  7. MEFENAMIC ACID [Concomitant]
     Indication: PAIN
     Route: 048
  8. SONOTA [Concomitant]
     Indication: SLEEP DISORDER THERAPY
     Dosage: 2 TABS AT NIGHT
     Route: 048
     Dates: start: 20070101
  9. PROGESTERONE [Concomitant]
     Indication: HORMONE REPLACEMENT THERAPY
     Route: 048
     Dates: start: 19800101
  10. MORPHINE SULFATE [Concomitant]
     Indication: PAIN
     Dosage: 15MG AT NIGHT
     Route: 048
     Dates: start: 20010101
  11. UNKNOWN MEDICATION [Concomitant]
     Indication: SLEEP DISORDER THERAPY

REACTIONS (12)
  - ASTHMA [None]
  - BLOOD CORTISOL DECREASED [None]
  - BONE PAIN [None]
  - BURNING SENSATION [None]
  - CHILLS [None]
  - COUGH [None]
  - DRUG INEFFECTIVE [None]
  - HOT FLUSH [None]
  - HYPERHIDROSIS [None]
  - PAIN [None]
  - PYREXIA [None]
  - WHEEZING [None]
